FAERS Safety Report 20679971 (Version 1)
Quarter: 2022Q2

REPORT INFORMATION
  Report Type: Report from Study
  Country: CA (occurrence: CA)
  Receive Date: 20220406
  Receipt Date: 20220406
  Transmission Date: 20220721
  Serious: Yes (Other)
  Sender: FDA-Public Use
  Company Number: CA-TAKEDA-2022TUS022699

PATIENT
  Age: 62 Year
  Sex: Female

DRUGS (11)
  1. VEDOLIZUMAB [Suspect]
     Active Substance: VEDOLIZUMAB
     Indication: Crohn^s disease
     Dosage: 300 MILLIGRAM
     Route: 042
     Dates: start: 20211030
  2. DIOVAN [Concomitant]
     Active Substance: VALSARTAN
     Dosage: UNK UNK, BID
  3. RABEPRAZOLE [Concomitant]
     Active Substance: RABEPRAZOLE
     Dosage: 20 MILLIGRAM
  4. ENTOCORT [Concomitant]
     Active Substance: BUDESONIDE
     Dosage: 6 MILLIGRAM, QD
     Dates: start: 20190501
  5. Salofalk [Concomitant]
     Dosage: UNK UNK, BID
     Dates: start: 20190202
  6. ISONIAZID [Concomitant]
     Active Substance: ISONIAZID
     Dosage: 300 MILLIGRAM, QD
  7. VITAMIN B6 [Concomitant]
     Active Substance: PYRIDOXINE HYDROCHLORIDE
     Dosage: 25 MILLIGRAM
  8. IRON [Concomitant]
     Active Substance: IRON
     Dosage: UNK UNK, BID
  9. SELENIUM [Concomitant]
     Active Substance: SELENIUM
     Dosage: 200 MICROGRAM
  10. MESALAMINE [Concomitant]
     Active Substance: MESALAMINE
     Dosage: 2.5 GRAM
     Route: 042
     Dates: start: 20090101
  11. VITAMIN D NOS [Concomitant]
     Active Substance: VITAMIN D NOS
     Dosage: UNK

REACTIONS (1)
  - Skin necrosis [Unknown]
